FAERS Safety Report 16323831 (Version 2)
Quarter: 2019Q2

REPORT INFORMATION
  Report Type: Report from Study
  Country: NL (occurrence: NL)
  Receive Date: 20190517
  Receipt Date: 20190611
  Transmission Date: 20190711
  Serious: Yes (Death, Hospitalization, Other)
  Sender: FDA-Public Use
  Company Number: PHHY2019NL112782

PATIENT
  Sex: Female
  Weight: 60 kg

DRUGS (3)
  1. PREDNISONE. [Concomitant]
     Active Substance: PREDNISONE
     Dosage: 30 MG, 1DD
     Route: 065
  2. ACLASTA [Suspect]
     Active Substance: ZOLEDRONIC ACID
     Indication: OSTEOPOROSIS
     Dosage: 5 MG, Q12MO
     Route: 042
     Dates: start: 20180604
  3. PREDNISONE. [Concomitant]
     Active Substance: PREDNISONE
     Indication: PRODUCT USED FOR UNKNOWN INDICATION
     Route: 065

REACTIONS (16)
  - Respiratory failure [Unknown]
  - Dyspnoea [Unknown]
  - Carbon dioxide increased [Unknown]
  - Blood lactic acid increased [Unknown]
  - Cough [Unknown]
  - Bladder obstruction [Unknown]
  - Haemodynamic instability [Unknown]
  - Cardiac failure [Unknown]
  - Pneumonia [Unknown]
  - General physical health deterioration [Unknown]
  - Oxygen saturation increased [Unknown]
  - Chronic obstructive pulmonary disease [Fatal]
  - Pulmonary hypertension [Unknown]
  - Congestive cardiomyopathy [Unknown]
  - Polycythaemia vera [Unknown]
  - Diastolic dysfunction [Unknown]
